FAERS Safety Report 6048701-6 (Version None)
Quarter: 2009Q1

REPORT INFORMATION
  Report Type: 
  Country: None (occurrence: None)
  Receive Date: 20090123
  Receipt Date: 20090112
  Transmission Date: 20090719
  Serious: Yes (Life-Threatening)
  Sender: FDA-Public Use
  Company Number: PL-ROCHE-607716

PATIENT
  Age: 17 Year
  Sex: Female

DRUGS (4)
  1. CELLCEPT [Suspect]
     Route: 048
     Dates: start: 20090102
  2. CELLCEPT [Suspect]
     Dosage: DOSAGE REGIMEN OF MYCOPHENOLATE MOFETIL INCREASED.
     Route: 048
     Dates: start: 20090107, end: 20090112
  3. STEROID NOS [Concomitant]
     Dosage: DRUG WITHDRAWN
  4. DIURETICS NOS [Concomitant]
     Dosage: DRUG WITHDRAWN

REACTIONS (4)
  - DIARRHOEA [None]
  - HYPOVOLAEMIC SHOCK [None]
  - LEUKOPENIA [None]
  - VOMITING [None]
